FAERS Safety Report 15647570 (Version 1)
Quarter: 2018Q4

REPORT INFORMATION
  Report Type: Spontaneous
  Country: US (occurrence: US)
  Receive Date: 20181122
  Receipt Date: 20181122
  Transmission Date: 20190205
  Serious: Yes (Death)
  Sender: FDA-Public Use
  Company Number: US-SERB S.A.S.-2059197

PATIENT
  Age: 26 Year
  Sex: Male
  Weight: 118 kg

DRUGS (5)
  1. ETOMIDATE. [Concomitant]
     Active Substance: ETOMIDATE
  2. SODIUM BICARBONATE. [Concomitant]
     Active Substance: SODIUM BICARBONATE
  3. CYANOKIT [Suspect]
     Active Substance: HYDROXOCOBALAMIN
     Indication: RESUSCITATION
     Route: 065
  4. HUMCO CHARCOAL ACTIVATED [Concomitant]
     Active Substance: ACTIVATED CHARCOAL
  5. ROCURONIUM [Concomitant]
     Active Substance: ROCURONIUM BROMIDE

REACTIONS (1)
  - Product use in unapproved indication [Fatal]
